FAERS Safety Report 22311233 (Version 1)
Quarter: 2023Q2

REPORT INFORMATION
  Report Type: Spontaneous
  Country: US (occurrence: None)
  Receive Date: 20230510
  Receipt Date: 20230510
  Transmission Date: 20230722
  Serious: Yes (Other)
  Sender: FDA-Public Use
  Company Number: None

PATIENT
  Sex: Female

DRUGS (10)
  1. TABRECTA [Suspect]
     Active Substance: CAPMATINIB
     Indication: Chest X-ray abnormal
     Dosage: FREQUENCY : AS DIRECTED;?
     Route: 048
     Dates: start: 20230131
  2. TABRECTA [Suspect]
     Active Substance: CAPMATINIB
     Dosage: FREQUENCY : AS DIRECTED;?
     Route: 048
  3. BIOTIN [Concomitant]
  4. CACLIUM 600 + D [Concomitant]
  5. MINERALS\VITAMINS [Concomitant]
     Active Substance: MINERALS\VITAMINS
  6. FISH OIL [Concomitant]
  7. IBUPROFEN [Concomitant]
     Active Substance: IBUPROFEN
  8. METHOCARBAM [Concomitant]
  9. NAPROXE [Concomitant]
  10. XGEVA [Concomitant]
     Active Substance: DENOSUMAB

REACTIONS (1)
  - Spinal operation [None]
